FAERS Safety Report 5106628-8 (Version None)
Quarter: 2006Q3

REPORT INFORMATION
  Report Type: 
  Country: None (occurrence: None)
  Receive Date: 20060918
  Receipt Date: 20060829
  Transmission Date: 20061208
  Serious: Yes (Death)
  Sender: FDA-Public Use
  Company Number: 2006AP04044

PATIENT
  Age: 21517 Day
  Sex: Female
  Weight: 40 kg

DRUGS (5)
  1. IRESSA [Suspect]
     Indication: LUNG ADENOCARCINOMA
     Route: 048
     Dates: start: 20060814, end: 20060822
  2. DIOVAN [Concomitant]
     Route: 048
     Dates: end: 20060822
  3. CISPLATIN [Concomitant]
     Dosage: 6 COURSES
     Dates: start: 20050609, end: 20050721
  4. CISPLATIN [Concomitant]
     Dosage: 6 COURSES
     Dates: start: 20051130, end: 20060110
  5. GEMCITABINE [Concomitant]
     Dosage: 5 COURSES
     Dates: start: 20060119, end: 20060216

REACTIONS (3)
  - LUNG DISORDER [None]
  - PYREXIA [None]
  - RESPIRATORY FAILURE [None]
